FAERS Safety Report 20752028 (Version 2)
Quarter: 2024Q3

REPORT INFORMATION
  Report Type: Spontaneous
  Country: US (occurrence: US)
  Receive Date: 20220426
  Receipt Date: 20240703
  Transmission Date: 20241017
  Serious: Yes (Other)
  Sender: BIOMARIN
  Company Number: US-SA-SAC20220421000284

PATIENT

DRUGS (2)
  1. LARONIDASE [Suspect]
     Active Substance: LARONIDASE
     Indication: Mucopolysaccharidosis I
     Dosage: 17.4 MG, QW
     Route: 042
     Dates: start: 20150311
  2. LARONIDASE [Suspect]
     Active Substance: LARONIDASE
     Dosage: 26.1 (UNIT NOT KNOWN), QW
     Route: 042
     Dates: start: 200612

REACTIONS (3)
  - Corneal opacity [Recovering/Resolving]
  - Condition aggravated [Recovering/Resolving]
  - Device issue [Recovered/Resolved]
